FAERS Safety Report 8315363-4 (Version None)
Quarter: 2012Q1

REPORT INFORMATION
  Report Type: 
  Country: None (occurrence: None)
  Receive Date: 20120315
  Receipt Date: 20101129
  Transmission Date: 20120608
  Serious: Yes (Other)
  Sender: FDA-Public Use
  Company Number: PHHY2010US77446

PATIENT
  Age: 52 Year
  Sex: Female

DRUGS (2)
  1. GILENYA [Suspect]
     Indication: MULTIPLE SCLEROSIS
     Dosage: 0.5 MG, QD, ORAL
     Route: 048
     Dates: start: 20101019
  2. PROVIGIL [Concomitant]

REACTIONS (4)
  - PIGMENTATION DISORDER [None]
  - FUNGAL SKIN INFECTION [None]
  - BLISTER [None]
  - RASH [None]
